FAERS Safety Report 6192444-5 (Version None)
Quarter: 2009Q2

REPORT INFORMATION
  Report Type: 
  Country: None (occurrence: None)
  Receive Date: 20090513
  Receipt Date: 20090513
  Transmission Date: 20091009
  Serious: Yes (Hospitalization)
  Sender: FDA-Public Use
  Company Number: None

PATIENT
  Sex: Male

DRUGS (1)
  1. PERCOCET [Suspect]
     Indication: POST PROCEDURAL INFECTION
     Dosage: 10/325 MGS

REACTIONS (3)
  - NAUSEA [None]
  - POST PROCEDURAL INFECTION [None]
  - PRODUCT SUBSTITUTION ISSUE [None]
